FAERS Safety Report 7370687-2 (Version None)
Quarter: 2011Q1

REPORT INFORMATION
  Report Type: 
  Country: None (occurrence: None)
  Receive Date: 20110323
  Receipt Date: 20110314
  Transmission Date: 20110831
  Serious: Yes (Death)
  Sender: FDA-Public Use
  Company Number: US-MYLANLABS-2011S1003125

PATIENT
  Age: 66 Year
  Sex: Male

DRUGS (6)
  1. FENTANYL-100 [Suspect]
     Indication: HEPATIC PAIN
     Dosage: CHANGED Q 72 HOURS.
     Route: 062
     Dates: start: 20101120, end: 20101121
  2. LORTAB [Concomitant]
  3. VITAMIN B6 [Concomitant]
  4. VITAMIN B-12 [Concomitant]
  5. FENTANYL-100 [Suspect]
     Indication: BACK PAIN
     Dosage: CHANGED Q 72 HOURS.
     Route: 062
     Dates: start: 20101120, end: 20101121
  6. NEXIUM [Concomitant]

REACTIONS (1)
  - LUNG NEOPLASM MALIGNANT [None]
